FAERS Safety Report 6773599-8 (Version None)
Quarter: 2010Q2

REPORT INFORMATION
  Report Type: 
  Country: None (occurrence: None)
  Receive Date: 20100614
  Receipt Date: 20100610
  Transmission Date: 20101027
  Serious: Yes (Hospitalization, Other)
  Sender: FDA-Public Use
  Company Number: 1000013750

PATIENT
  Age: 66 Year
  Sex: Male

DRUGS (2)
  1. BYSTOLIC [Suspect]
     Indication: HYPERTENSION
     Dosage: 0 5 MG (5 MG, 1 IN 1 D), ORAL
     Route: 048
     Dates: start: 20100430, end: 20100503
  2. LEVOXYL [Concomitant]

REACTIONS (5)
  - DIZZINESS [None]
  - FACIAL BONES FRACTURE [None]
  - FALL [None]
  - SYNCOPE [None]
  - VISION BLURRED [None]
